FAERS Safety Report 5510203-0 (Version None)
Quarter: 2007Q4

REPORT INFORMATION
  Report Type: 
  Country: None (occurrence: None)
  Receive Date: 20071108
  Receipt Date: 20071029
  Transmission Date: 20080405
  Serious: Yes (Hospitalization, Other)
  Sender: FDA-Public Use
  Company Number: US-ELI_LILLY_AND_COMPANY-US200710007165

PATIENT
  Sex: Female

DRUGS (2)
  1. FORTEO [Suspect]
     Indication: FOOT FRACTURE
     Dates: start: 20071004
  2. LAMISIL [Concomitant]
     Indication: ONYCHOMYCOSIS

REACTIONS (3)
  - BLOOD PRESSURE DECREASED [None]
  - GASTRIC ULCER HAEMORRHAGE [None]
  - PULMONARY THROMBOSIS [None]
